FAERS Safety Report 6898241-7 (Version None)
Quarter: 2010Q3

REPORT INFORMATION
  Report Type: 
  Country: None (occurrence: None)
  Receive Date: 20100802
  Receipt Date: 20070926
  Transmission Date: 20110219
  Serious: No
  Sender: FDA-Public Use
  Company Number: US-PFIZER INC-2007062948

PATIENT
  Sex: Female
  Weight: 53.6 kg

DRUGS (6)
  1. LYRICA [Suspect]
     Indication: PAIN IN EXTREMITY
     Dates: start: 20070621, end: 20070630
  2. LYRICA [Suspect]
     Indication: NEUROPATHY PERIPHERAL
  3. VITAMINS [Suspect]
  4. TRAZODONE [Concomitant]
     Indication: SLEEP DISORDER
  5. LITHIUM [Concomitant]
  6. CALCIUM [Concomitant]

REACTIONS (2)
  - DRUG INEFFECTIVE [None]
  - INSOMNIA [None]
